FAERS Safety Report 4381775-7 (Version None)
Quarter: 2004Q2

REPORT INFORMATION
  Report Type: 
  Country: None (occurrence: None)
  Receive Date: 20040603
  Receipt Date: 20030819
  Transmission Date: 20050107
  Serious: Yes (Hospitalization)
  Sender: FDA-Public Use
  Company Number: 200317585US

PATIENT
  Age: 65 Year
  Sex: Female
  Weight: 84.1 kg

DRUGS (14)
  1. LOVENOX [Suspect]
     Indication: PULMONARY EMBOLISM
     Dosage: 1 MG/KG BID SC
     Route: 058
     Dates: start: 20030610, end: 20030619
  2. COUMADIN [Suspect]
     Indication: PULMONARY EMBOLISM
     Dosage: 6 MG QD PO
     Route: 048
     Dates: start: 20030610, end: 20030619
  3. LORATADINE (CLARITIN) [Concomitant]
  4. LASIX [Concomitant]
  5. ESTROGENS CONJUGATED (PREMARIN) [Concomitant]
  6. POTASSIUM CHLORIDE (K-LOR) [Concomitant]
  7. PARACETAMOL, HYDROCODONE BITARTRATE (NORCO) [Concomitant]
  8. KEFLEX [Concomitant]
  9. GUAIFENESIN [Concomitant]
  10. PAXIL [Concomitant]
  11. RABEPRAZOLE SODIUM (ACIPHEX) [Concomitant]
  12. FLUTICASONE PROPIONATE (FLONASE) [Concomitant]
  13. VENTOLIN [Concomitant]
  14. METHYLPREDNISOLONE SODIUM SUCCINATE (SOLU-MEDROL) [Concomitant]

REACTIONS (6)
  - EPISTAXIS [None]
  - FAECAL OCCULT BLOOD POSITIVE [None]
  - HAEMATOCHEZIA [None]
  - HAEMORRHAGE [None]
  - INTERNATIONAL NORMALISED RATIO INCREASED [None]
  - RED BLOOD CELLS URINE POSITIVE [None]
